FAERS Safety Report 11749511 (Version 1)
Quarter: 2015Q4

REPORT INFORMATION
  Report Type: Spontaneous
  Country: US (occurrence: None)
  Receive Date: 20151117
  Receipt Date: 20151117
  Transmission Date: 20160304
  Serious: No
  Sender: FDA-Public Use
  Company Number: None

PATIENT
  Sex: Male
  Weight: 130.18 kg

DRUGS (1)
  1. VALSARTAN 160 MG OHM LABS [Suspect]
     Active Substance: VALSARTAN
     Indication: BLOOD PRESSURE MEASUREMENT
     Route: 048
     Dates: start: 20111101, end: 20151114

REACTIONS (3)
  - Palpitations [None]
  - Vision blurred [None]
  - Dyspnoea [None]
